FAERS Safety Report 8816709 (Version 2)
Quarter: 2012Q4

REPORT INFORMATION
  Report Type: Spontaneous
  Country: US (occurrence: None)
  Receive Date: 20120928
  Receipt Date: 20121009
  Transmission Date: 20130627
  Serious: Yes (Hospitalization)
  Sender: FDA-Public Use
  Company Number: USA/USA/12/0026038

PATIENT
  Age: 45 Year
  Sex: Male

DRUGS (9)
  1. LAMOTRIGINE [Suspect]
     Indication: FRONTAL LOBE EPILEPSY
  2. DIVALPROEX SODIUM [Suspect]
     Indication: FRONTAL LOBE EPILEPSY
  3. DIVALPROEX SODIUM [Suspect]
     Indication: FRONTAL LOBE EPILEPSY
  4. DIVALPROEX SODIUM [Suspect]
     Indication: FRONTAL LOBE EPILEPSY
  5. RISPERIDONE [Concomitant]
  6. VITAMIN B1 (THIAMINE HYDROCHLORIDE) [Concomitant]
  7. VITAMIN D3 (COLECALCIFEROL) [Concomitant]
  8. TOPIRAMATE (TOPIRAMATE) [Concomitant]
  9. LORAZEPAM (LORAZEPAM) [Concomitant]

REACTIONS (8)
  - Drug interaction [None]
  - Mental status changes [None]
  - Ataxia [None]
  - Dysarthria [None]
  - Hallucination [None]
  - Aggression [None]
  - Convulsion [None]
  - Condition aggravated [None]
